FAERS Safety Report 4598912-1 (Version None)
Quarter: 2005Q1

REPORT INFORMATION
  Report Type: 
  Country: None (occurrence: None)
  Receive Date: 20050304
  Receipt Date: 20050225
  Transmission Date: 20050727
  Serious: Yes (Other)
  Sender: FDA-Public Use
  Company Number: US-ABBOTT-05P-163-0292086-00

PATIENT
  Sex: Female
  Weight: 100 kg

DRUGS (6)
  1. MERIDIA [Suspect]
     Indication: WEIGHT CONTROL
     Route: 048
     Dates: start: 19980501, end: 19981001
  2. CANDESARTAN CILEXETIL [Concomitant]
     Indication: BLOOD PRESSURE INCREASED
     Route: 048
     Dates: start: 19981201, end: 20010101
  3. CANDESARTAN CILEXETIL [Concomitant]
     Route: 048
     Dates: start: 20020101
  4. BEXTRA [Concomitant]
     Indication: ARTHRALGIA
     Route: 048
  5. FENTANYL [Concomitant]
     Indication: ACNE
     Route: 048
  6. CLONAZEPAM [Concomitant]
     Indication: ANXIETY
     Route: 048
     Dates: start: 20040101

REACTIONS (2)
  - BLOOD PRESSURE INCREASED [None]
  - LEUKAEMIA [None]
